FAERS Safety Report 10172847 (Version 1)
Quarter: 2014Q2

REPORT INFORMATION
  Report Type: Spontaneous
  Country: JP (occurrence: JP)
  Receive Date: 20140515
  Receipt Date: 20140515
  Transmission Date: 20141212
  Serious: Yes (Other)
  Sender: FDA-Public Use
  Company Number: JP-ROCHE-1400873

PATIENT
  Age: 47 Year
  Sex: Male
  Weight: 56 kg

DRUGS (3)
  1. TAMIFLU [Suspect]
     Indication: INFLUENZA
     Route: 048
     Dates: start: 20140323, end: 20140328
  2. LUVOX [Concomitant]
     Indication: DEPRESSION
     Route: 048
  3. RISPERDAL [Concomitant]
     Indication: DEPRESSION
     Route: 048

REACTIONS (1)
  - Parkinsonism [Recovering/Resolving]
